FAERS Safety Report 10259645 (Version 1)
Quarter: 2014Q2

REPORT INFORMATION
  Report Type: Spontaneous
  Country: US (occurrence: US)
  Receive Date: 20140625
  Receipt Date: 20140625
  Transmission Date: 20141212
  Serious: No
  Sender: FDA-Public Use
  Company Number: US-ASTRAZENECA-2014SE44367

PATIENT
  Age: 81 Year
  Sex: Female
  Weight: 74.8 kg

DRUGS (4)
  1. NEXIUM [Suspect]
     Indication: GASTROOESOPHAGEAL REFLUX DISEASE
     Route: 048
     Dates: start: 2008
  2. NEXIUM [Suspect]
     Indication: GASTROOESOPHAGEAL REFLUX DISEASE
     Route: 048
     Dates: start: 20140428
  3. SERTRALINE [Concomitant]
     Indication: FIBROMYALGIA
  4. NORVASC [Concomitant]
     Indication: HYPERTENSION

REACTIONS (8)
  - Gastrooesophageal reflux disease [Unknown]
  - Arthritis [Unknown]
  - Hypertension [Unknown]
  - Hypophagia [Unknown]
  - Fibromyalgia [Unknown]
  - Dyspepsia [Unknown]
  - Vomiting [Unknown]
  - Drug ineffective [Unknown]
